FAERS Safety Report 7318378-8 (Version None)
Quarter: 2011Q1

REPORT INFORMATION
  Report Type: 
  Country: None (occurrence: None)
  Receive Date: 20110228
  Receipt Date: 20110215
  Transmission Date: 20110831
  Serious: Yes (Other)
  Sender: FDA-Public Use
  Company Number: US-AMGEN-USASP2011010895

PATIENT
  Sex: Female

DRUGS (3)
  1. ENBREL [Suspect]
     Indication: PSORIASIS
     Dosage: UNK
  2. CELEBREX [Suspect]
     Dosage: UNK
  3. ENBREL [Suspect]
     Indication: PSORIATIC ARTHROPATHY

REACTIONS (2)
  - PSORIATIC ARTHROPATHY [None]
  - PULMONARY EMBOLISM [None]
